FAERS Safety Report 9010164 (Version 2)
Quarter: 2013Q1

REPORT INFORMATION
  Report Type: Spontaneous
  Country: GB (occurrence: GB)
  Receive Date: 20130110
  Receipt Date: 20130128
  Transmission Date: 20140127
  Serious: Yes (Other)
  Sender: FDA-Public Use
  Company Number: PHFR2013GB000544

PATIENT
  Age: 78 Year
  Sex: Female

DRUGS (1)
  1. ESTRADERM TTS [Suspect]
     Indication: OESTROGEN DEFICIENCY
     Dosage: 1 DF, BIW
     Route: 062

REACTIONS (7)
  - Heart valve incompetence [Unknown]
  - Device related infection [Unknown]
  - Haematuria [Unknown]
  - Malaise [Unknown]
  - Feeling hot [Unknown]
  - Expired drug administered [Unknown]
  - Cystitis [None]
